FAERS Safety Report 6104364-2 (Version None)
Quarter: 2009Q1

REPORT INFORMATION
  Report Type: 
  Country: None (occurrence: None)
  Receive Date: 20090305
  Receipt Date: 20090223
  Transmission Date: 20090719
  Serious: Yes (Disabling, Other)
  Sender: FDA-Public Use
  Company Number: US-ELI_LILLY_AND_COMPANY-US200902006343

PATIENT
  Sex: Female

DRUGS (1)
  1. EVISTA [Suspect]
     Dosage: UNK, UNKNOWN
     Route: 065

REACTIONS (7)
  - ARTHRITIS [None]
  - ASTHENIA [None]
  - FALL [None]
  - FATIGUE [None]
  - NO THERAPEUTIC RESPONSE [None]
  - UPPER LIMB FRACTURE [None]
  - WALKING AID USER [None]
